FAERS Safety Report 9611838 (Version 2)
Quarter: 2013Q4

REPORT INFORMATION
  Report Type: Report from Study
  Country: BR (occurrence: BR)
  Receive Date: 20131010
  Receipt Date: 20131108
  Transmission Date: 20140711
  Serious: Yes (Life-Threatening, Hospitalization, Other)
  Sender: FDA-Public Use
  Company Number: PHHY2013BR113406

PATIENT
  Age: 70 Year
  Sex: Male

DRUGS (7)
  1. DIOVAN HCT [Suspect]
     Indication: BLOOD PRESSURE ABNORMAL
     Dosage: 1.5 DF (160MG VALS/ 25MG HYDR), 1 IN MORNING AND HALF TABLET AT AFTERNOON
     Dates: end: 20120422
  2. DIOVAN HCT [Suspect]
     Dosage: 1 DF (80MG VALS/ 12.5MG HYDR), DAILY
     Route: 048
     Dates: start: 201308, end: 20131102
  3. AAS [Concomitant]
     Indication: BLOOD DISORDER
     Dosage: 1 DF (100 MG), DAILY
     Route: 048
     Dates: end: 20131102
  4. CONCOR [Concomitant]
     Indication: HYPERTENSION
     Dosage: 2 DF (5 MG), DAILY
     Route: 048
     Dates: start: 201309, end: 20131102
  5. MARCOUMAR [Concomitant]
     Indication: BLOOD DISORDER
     Dosage: 1 DF (3 MG), DAILY
     Route: 048
     Dates: start: 201205, end: 20131102
  6. SIMVASTATIN [Concomitant]
     Indication: BLOOD CHOLESTEROL INCREASED
     Dosage: 1 DF (20 MG), DAILY
     Route: 048
     Dates: start: 201205, end: 20131102
  7. OMEPRAZOLE [Concomitant]
     Indication: ABDOMINAL DISCOMFORT
     Dosage: 1 DF (20 MG), DAILY
     Route: 048
     Dates: start: 201205, end: 20131102

REACTIONS (14)
  - Coma [Recovering/Resolving]
  - Dysstasia [Recovered/Resolved]
  - Cerebrovascular accident [Recovering/Resolving]
  - Malaise [Recovering/Resolving]
  - Balance disorder [Recovered/Resolved]
  - Feeling abnormal [Recovered/Resolved]
  - Convulsion [Not Recovered/Not Resolved]
  - Cerebral haemorrhage [Not Recovered/Not Resolved]
  - Anxiety [Recovered/Resolved]
  - Amnesia [Recovering/Resolving]
  - Aortic occlusion [Recovering/Resolving]
  - Movement disorder [Recovering/Resolving]
  - Blood pressure inadequately controlled [Unknown]
  - Wrong technique in drug usage process [Unknown]
